FAERS Safety Report 13186338 (Version 1)
Quarter: 2017Q1

REPORT INFORMATION
  Report Type: Spontaneous
  Country: AR (occurrence: AR)
  Receive Date: 20170204
  Receipt Date: 20170204
  Transmission Date: 20170428
  Serious: Yes (Hospitalization, Other)
  Sender: FDA-Public Use
  Company Number: AR-AMGEN-ARGSP2017018203

PATIENT
  Age: 61 Year
  Sex: Male

DRUGS (1)
  1. ENBREL [Suspect]
     Active Substance: ETANERCEPT
     Indication: ANKYLOSING SPONDYLITIS
     Dosage: 50 MG, WEEKLY
     Dates: start: 20110110

REACTIONS (9)
  - Transaminases increased [Not Recovered/Not Resolved]
  - Blood glucose increased [Not Recovered/Not Resolved]
  - Mass [Recovering/Resolving]
  - Arterial occlusive disease [Recovering/Resolving]
  - Limb discomfort [Recovering/Resolving]
  - Skin haemorrhage [Recovering/Resolving]
  - Chest pain [Recovering/Resolving]
  - Joint injury [Recovering/Resolving]
  - Infarction [Recovering/Resolving]

NARRATIVE: CASE EVENT DATE: 2012
